FAERS Safety Report 16816955 (Version 2)
Quarter: 2020Q4

REPORT INFORMATION
  Report Type: Spontaneous
  Country: US (occurrence: US)
  Receive Date: 20190917
  Receipt Date: 20201006
  Transmission Date: 20210113
  Serious: No
  Sender: FDA-Public Use
  Company Number: US-ALLERGAN-1934277US

PATIENT
  Sex: Female

DRUGS (2)
  1. LINZESS [Suspect]
     Active Substance: LINACLOTIDE
     Indication: IRRITABLE BOWEL SYNDROME
     Dosage: 290 ?G, BID, WITH FOOD
  2. LINZESS [Suspect]
     Active Substance: LINACLOTIDE
     Dosage: 145 ?G, BID
     Route: 065
     Dates: start: 20190717

REACTIONS (6)
  - Inappropriate schedule of product administration [Unknown]
  - Migraine [Unknown]
  - Product administration error [Unknown]
  - Constipation [Unknown]
  - Drug ineffective [Unknown]
  - Overdose [Unknown]
